FAERS Safety Report 26068346 (Version 1)
Quarter: 2025Q4

REPORT INFORMATION
  Report Type: Spontaneous
  Country: EU (occurrence: EU)
  Receive Date: 20251120
  Receipt Date: 20251120
  Transmission Date: 20260118
  Serious: Yes (Disabling)
  Sender: AUROBINDO
  Company Number: EU-KERNPHARMA-202502862

PATIENT
  Age: 48 Year
  Sex: Female

DRUGS (4)
  1. PREGABALIN [Suspect]
     Active Substance: PREGABALIN
     Indication: Product used for unknown indication
     Dosage: 150 MILLIGRAM, TWO TIMES A DAY
  2. AMITRIPTYLINE [Suspect]
     Active Substance: AMITRIPTYLINE
     Indication: Product used for unknown indication
     Dosage: 25 MILLIGRAM, ONCE A DAY
     Route: 065
  3. ROPIVACAINE [Concomitant]
     Active Substance: ROPIVACAINE
     Indication: Amputation stump pain
     Dosage: 2 MG/ML
     Route: 065
  4. topical application of 8% capsaicin [Concomitant]
     Indication: Amputation stump pain
     Dosage: 2 ML OF 2 MG/ML

REACTIONS (1)
  - Drug ineffective [Unknown]
